FAERS Safety Report 15894440 (Version 1)
Quarter: 2019Q1

REPORT INFORMATION
  Report Type: Spontaneous
  Country: US (occurrence: US)
  Receive Date: 20190131
  Receipt Date: 20190131
  Transmission Date: 20190417
  Serious: Yes (Other)
  Sender: FDA-Public Use
  Company Number: None

PATIENT
  Age: 48 Year
  Sex: Male
  Weight: 104.85 kg

DRUGS (1)
  1. ANDROGEL GENERIC [Suspect]
     Active Substance: TESTOSTERONE
     Indication: BLOOD TESTOSTERONE DECREASED
     Route: 061
     Dates: start: 20190129, end: 20190130

REACTIONS (2)
  - Pain [None]
  - Rash generalised [None]

NARRATIVE: CASE EVENT DATE: 20190130
